FAERS Safety Report 4911974-4 (Version None)
Quarter: 2006Q1

REPORT INFORMATION
  Report Type: 
  Country: None (occurrence: None)
  Receive Date: 20060215
  Receipt Date: 20060206
  Transmission Date: 20060701
  Serious: Yes (Other)
  Sender: FDA-Public Use
  Company Number: PHBS2006RU02165

PATIENT
  Age: 28 Year
  Sex: Female

DRUGS (2)
  1. FEXADIN [Concomitant]
     Dosage: 180
     Route: 048
     Dates: start: 20060127
  2. FAMVIR [Suspect]
     Indication: HERPES VIRUS INFECTION
     Dosage: 250 MG, BID
     Route: 048
     Dates: start: 20060127, end: 20060127

REACTIONS (3)
  - ANGIONEUROTIC OEDEMA [None]
  - HYPOAESTHESIA [None]
  - LOSS OF CONSCIOUSNESS [None]
